FAERS Safety Report 7939778-9 (Version None)
Quarter: 2011Q4

REPORT INFORMATION
  Report Type: 
  Country: None (occurrence: None)
  Receive Date: 20111125
  Receipt Date: 20111121
  Transmission Date: 20120403
  Serious: Yes (Death)
  Sender: FDA-Public Use
  Company Number: PHHY2009NL67028

PATIENT
  Sex: Female
  Weight: 58 kg

DRUGS (6)
  1. SANDOSTATIN LAR [Suspect]
     Indication: ACROMEGALY
     Dosage: UNK UKN, UNK
     Route: 030
     Dates: start: 19960101
  2. LEVOTHYROXINE SODIUM [Concomitant]
  3. SANDOSTATIN LAR [Suspect]
     Dosage: 10 MG, ONCE PER 3 WEEK
     Route: 030
     Dates: start: 20090423
  4. NORPROLAC [Concomitant]
  5. HYDROCORTISONE [Concomitant]
  6. SANDOSTATIN LAR [Suspect]
     Dosage: 10 MG, ONCE PER 3 WEEK
     Route: 030
     Dates: start: 20070618

REACTIONS (1)
  - GLIOBLASTOMA [None]
